FAERS Safety Report 23361144 (Version 1)
Quarter: 2024Q1

REPORT INFORMATION
  Report Type: Spontaneous
  Country: US (occurrence: None)
  Receive Date: 20240102
  Receipt Date: 20240102
  Transmission Date: 20240409
  Serious: No
  Sender: FDA-Public Use
  Company Number: None

PATIENT

DRUGS (2)
  1. PLASMA-LYTE A [Suspect]
     Active Substance: MAGNESIUM CHLORIDE\POTASSIUM CHLORIDE\SODIUM ACETATE\SODIUM CHLORIDE\SODIUM GLUCONATE
  2. ANTICOAGULANT CITRATE DEXTROSE SOLUTION-A [Suspect]
     Active Substance: CITRIC ACID MONOHYDRATE\DEXTROSE\SODIUM CITRATE

REACTIONS (4)
  - Product dispensing error [None]
  - Product barcode issue [None]
  - Intercepted product dispensing error [None]
  - Product label on wrong product [None]
